FAERS Safety Report 7131518-9 (Version None)
Quarter: 2010Q4

REPORT INFORMATION
  Report Type: 
  Country: None (occurrence: None)
  Receive Date: 20101201
  Receipt Date: 20101124
  Transmission Date: 20110411
  Serious: Yes (Death, Hospitalization)
  Sender: FDA-Public Use
  Company Number: IN-BAXTER-2010BH028991

PATIENT
  Age: 13 Year
  Sex: Female

DRUGS (8)
  1. IFOSFAMIDE [Suspect]
     Indication: BONE SARCOMA
     Route: 065
  2. IFOSFAMIDE [Suspect]
     Indication: METASTASES TO LUNG
     Route: 065
  3. ETOPOSIDE [Suspect]
     Indication: BONE SARCOMA
     Route: 065
  4. ETOPOSIDE [Suspect]
     Indication: METASTASES TO LUNG
     Route: 065
  5. CISPLATIN [Suspect]
     Indication: BONE SARCOMA
     Route: 065
  6. CISPLATIN [Suspect]
     Indication: METASTASES TO LUNG
     Route: 065
  7. DOXORUBICIN HCL [Suspect]
     Indication: BONE SARCOMA
     Route: 065
  8. DOXORUBICIN HCL [Suspect]
     Indication: METASTASES TO LUNG
     Route: 065

REACTIONS (6)
  - FEBRILE NEUTROPENIA [None]
  - GENERAL PHYSICAL HEALTH DETERIORATION [None]
  - H1N1 INFLUENZA [None]
  - LUNG CONSOLIDATION [None]
  - SHOCK [None]
  - WHITE BLOOD CELL COUNT DECREASED [None]
